FAERS Safety Report 11694997 (Version 1)
Quarter: 2015Q4

REPORT INFORMATION
  Report Type: Spontaneous
  Country: US (occurrence: US)
  Receive Date: 20151103
  Receipt Date: 20151103
  Transmission Date: 20160304
  Serious: Yes (Hospitalization, Other)
  Sender: FDA-Public Use
  Company Number: US-ASTRAZENECA-2015SF03890

PATIENT
  Age: 726 Month
  Sex: Female

DRUGS (2)
  1. ARIMIDEX [Suspect]
     Active Substance: ANASTROZOLE
     Indication: BREAST CANCER
     Route: 048
  2. FASLODEX [Suspect]
     Active Substance: FULVESTRANT
     Indication: BREAST CANCER METASTATIC
     Route: 030
     Dates: start: 201411

REACTIONS (16)
  - Vomiting [Unknown]
  - Lung disorder [Not Recovered/Not Resolved]
  - Weight decreased [Recovered/Resolved]
  - Frustration [Unknown]
  - Insomnia [Unknown]
  - Depression [Not Recovered/Not Resolved]
  - Headache [Unknown]
  - Breast cancer recurrent [Unknown]
  - Vision blurred [Recovered/Resolved]
  - Renal disorder [Not Recovered/Not Resolved]
  - Nausea [Not Recovered/Not Resolved]
  - Hepatic lesion [Not Recovered/Not Resolved]
  - Dizziness [Recovered/Resolved]
  - Alopecia [Not Recovered/Not Resolved]
  - Ulcer haemorrhage [Unknown]
  - Cough [Not Recovered/Not Resolved]

NARRATIVE: CASE EVENT DATE: 201411
